FAERS Safety Report 9077564 (Version 1)
Quarter: 2013Q1

REPORT INFORMATION
  Report Type: Report from Study
  Country: US (occurrence: US)
  Receive Date: 20130130
  Receipt Date: 20130130
  Transmission Date: 20140127
  Serious: No
  Sender: FDA-Public Use
  Company Number: US-ABBOTT-12P-163-0960645-00

PATIENT
  Age: 51 Year
  Sex: Male

DRUGS (6)
  1. HUMIRA 40 MG/0.8 ML PEN [Suspect]
     Indication: CROHN^S DISEASE
     Dates: start: 20120711, end: 20120711
  2. HUMIRA 40 MG/0.8 ML PEN [Suspect]
     Dates: start: 20120725
  3. NEXIUM [Concomitant]
     Indication: GASTRITIS
     Route: 048
  4. BENTYL [Concomitant]
     Indication: CROHN^S DISEASE
  5. HYDROCODONE [Concomitant]
     Indication: PAIN
     Dosage: 7.5MG/300
  6. MULTIVITAMIN [Concomitant]
     Indication: PRODUCT USED FOR UNKNOWN INDICATION

REACTIONS (1)
  - Cerumen impaction [Not Recovered/Not Resolved]
